FAERS Safety Report 8847973 (Version 1)
Quarter: 2012Q4

REPORT INFORMATION
  Report Type: 
  Country: US (occurrence: US)
  Receive Date: 20121018
  Receipt Date: 20121018
  Transmission Date: 20130627
  Serious: Yes (Other)
  Sender: FDA-Public Use
  Company Number: US-ROCHE-1140494

PATIENT
  Sex: Female
  Weight: 22 kg

DRUGS (2)
  1. NUTROPIN AQ [Suspect]
     Indication: TURNER^S SYNDROME
     Route: 058
     Dates: start: 199911
  2. NUTROPIN AQ [Suspect]
     Dosage: 0.25 ml
     Route: 058

REACTIONS (2)
  - Cardiac murmur [Unknown]
  - Hypotension [Unknown]
